FAERS Safety Report 5746327-2 (Version None)
Quarter: 2008Q2

REPORT INFORMATION
  Report Type: 
  Country: None (occurrence: None)
  Receive Date: 20080520
  Receipt Date: 20080520
  Transmission Date: 20081010
  Serious: Yes (Life-Threatening, Hospitalization)
  Sender: FDA-Public Use
  Company Number: None

PATIENT
  Age: 66 Year
  Sex: Male
  Weight: 88 kg

DRUGS (12)
  1. LIPITOR [Suspect]
     Indication: HYPERCHOLESTEROLAEMIA
     Dosage: 10MG        DAILY AT BEDTIME       PO
     Route: 048
  2. TRAZODONE HCL [Concomitant]
  3. PLAVIX [Concomitant]
  4. SYMMETREL [Concomitant]
  5. XANAX [Concomitant]
  6. PROMETHAZINE [Concomitant]
  7. CLONIDINE [Concomitant]
  8. DIOVAN [Concomitant]
  9. PREVACID [Concomitant]
  10. WELLBUTRIN [Concomitant]
  11. SPIRIVA [Concomitant]
  12. ALBUTEROL [Concomitant]

REACTIONS (17)
  - ABASIA [None]
  - AGITATION [None]
  - ARTERIAL BYPASS OPERATION [None]
  - BACTERAEMIA [None]
  - BLOOD CREATINE PHOSPHOKINASE INCREASED [None]
  - DIZZINESS [None]
  - GENERAL PHYSICAL HEALTH DETERIORATION [None]
  - HAEMODIALYSIS [None]
  - HALLUCINATION [None]
  - ILEUS [None]
  - MYALGIA [None]
  - PERIPHERAL ISCHAEMIA [None]
  - PNEUMONIA [None]
  - RENAL FAILURE [None]
  - RHABDOMYOLYSIS [None]
  - SEPSIS [None]
  - TREMOR [None]
